FAERS Safety Report 10071741 (Version 9)
Quarter: 2014Q4

REPORT INFORMATION
  Report Type: Spontaneous
  Country: ES (occurrence: ES)
  Receive Date: 20140411
  Receipt Date: 20141128
  Transmission Date: 20150528
  Serious: Yes (Other)
  Sender: FDA-Public Use
  Company Number: ES-AMGEN INC.-ESPSP2014012876

PATIENT
  Age: 60 Year
  Sex: Female

DRUGS (16)
  1. CARDURA [Concomitant]
     Active Substance: DOXAZOSIN MESYLATE
     Dosage: UNK
  2. ENBREL [Suspect]
     Active Substance: ETANERCEPT
     Dosage: UNK
     Route: 065
  3. CARDURA [Concomitant]
     Active Substance: DOXAZOSIN MESYLATE
     Dosage: UNK,DAY
  4. METFORMIN [Concomitant]
     Active Substance: METFORMIN HYDROCHLORIDE
     Indication: BLOOD GLUCOSE
     Dosage: UNK
  5. ENBREL [Suspect]
     Active Substance: ETANERCEPT
     Indication: RHEUMATOID ARTHRITIS
     Dosage: 50 MG, WEEKLY, ON WEDNESDAYS
     Route: 058
     Dates: start: 20140212
  6. IRON [Concomitant]
     Active Substance: IRON
     Dosage: UNK
  7. LEXATIN                            /00424801/ [Concomitant]
     Active Substance: BROMAZEPAM
     Indication: INSOMNIA
     Dosage: 1.5 MG, 1X/DAY
  8. BERTANEL [Suspect]
     Active Substance: METHOTREXATE SODIUM
     Indication: RHEUMATOID ARTHRITIS
     Dosage: UNK, WEEKLY
     Route: 065
  9. ALDACTONE 100 [Concomitant]
     Indication: HYPERTENSION
     Dosage: UNK, DAY
  10. BESITRAN [Concomitant]
     Active Substance: SERTRALINE HYDROCHLORIDE
     Indication: ANXIETY
     Dosage: UNK
  11. SERACTIL [Concomitant]
     Active Substance: DEXIBUPROFEN
     Indication: ANTIINFLAMMATORY THERAPY
     Dosage: 400 MG, 1X/DAY
  12. ENBREL [Suspect]
     Active Substance: ETANERCEPT
     Dosage: UNK
     Route: 065
  13. ENBREL [Suspect]
     Active Substance: ETANERCEPT
     Dosage: UNK
     Route: 065
  14. ALDACTONE 100 [Concomitant]
     Dosage: UNK
  15. URBASON                            /00049601/ [Suspect]
     Active Substance: METHYLPREDNISOLONE
     Indication: INFLAMMATION
     Dosage: UNK
     Route: 065
  16. OMEPRAZOL                          /00661201/ [Concomitant]
     Active Substance: OMEPRAZOLE
     Indication: GASTRITIS PROPHYLAXIS
     Dosage: UNK, DAY

REACTIONS (18)
  - Increased appetite [Unknown]
  - Blindness [Unknown]
  - Injection site pain [Unknown]
  - Somnolence [Unknown]
  - Pain in extremity [Unknown]
  - Thirst [Unknown]
  - Inflammation [Unknown]
  - Dizziness [Unknown]
  - Pain [Unknown]
  - Rheumatoid arthritis [Unknown]
  - Vision blurred [Unknown]
  - Food craving [Unknown]
  - Peripheral swelling [Unknown]
  - Listless [Unknown]
  - Hot flush [Unknown]
  - Fatigue [Unknown]
  - Diarrhoea [Unknown]
  - Abdominal pain [Unknown]

NARRATIVE: CASE EVENT DATE: 2014
